FAERS Safety Report 7418789-6 (Version None)
Quarter: 2011Q2

REPORT INFORMATION
  Report Type: 
  Country: None (occurrence: None)
  Receive Date: 20110415
  Receipt Date: 20110411
  Transmission Date: 20111010
  Serious: Yes (Other)
  Sender: FDA-Public Use
  Company Number: CHPA2011US04576

PATIENT
  Age: 77 Year
  Sex: Female

DRUGS (8)
  1. BENEFIBER W/ WHEAT DEXTRIN [Suspect]
     Indication: ABDOMINAL PAIN
     Dosage: 1 TSP, QD
     Route: 048
     Dates: start: 20110326, end: 20110327
  2. LISINOPRIL [Concomitant]
     Indication: HYPERTENSION
     Dosage: 20 MG, QD
  3. JANUVIA [Concomitant]
     Indication: TYPE 2 DIABETES MELLITUS
     Dosage: 50 MG, QD
     Dates: start: 20110307
  4. ATENOLOL [Concomitant]
     Indication: HEART RATE
     Dosage: 50 MG, QD
  5. TIKOSYN [Concomitant]
     Indication: HYPERTENSION
     Dosage: 125 UG, BID
     Dates: start: 20100101
  6. PREMARIN [Concomitant]
     Indication: HYSTERECTOMY
     Dosage: .625 UG, QD
  7. LISINOPRIL [Concomitant]
     Indication: CARDIAC DISORDER
  8. WARFARIN [Concomitant]
     Indication: ANTICOAGULANT THERAPY
     Dosage: 4 MG, QD
     Dates: start: 20100101

REACTIONS (3)
  - OFF LABEL USE [None]
  - HIP FRACTURE [None]
  - BLOOD GLUCOSE INCREASED [None]
